FAERS Safety Report 20835740 (Version 1)
Quarter: 2022Q2

REPORT INFORMATION
  Report Type: 
  Country: None (occurrence: None)
  Receive Date: 20220516
  Receipt Date: 20220516
  Transmission Date: 20220721
  Serious: No
  Sender: FDA-Public Use
  Company Number: IT-ROCHE-2903568

PATIENT

DRUGS (15)
  1. CAPECITABINE [Suspect]
     Active Substance: CAPECITABINE
     Dosage: DAY1 - DAY 14
     Dates: start: 201810
  2. TRASTUZUMAB [Suspect]
     Active Substance: TRASTUZUMAB
     Dosage: LOADING DOSE ?4 CYCLES
  3. TRASTUZUMAB [Suspect]
     Active Substance: TRASTUZUMAB
     Dosage: MAINTENANCE DOSE?4 CYCLES
  4. PERTUZUMAB [Suspect]
     Active Substance: PERTUZUMAB
  5. ADO-TRASTUZUMAB EMTANSINE [Suspect]
     Active Substance: ADO-TRASTUZUMAB EMTANSINE
     Dates: start: 201608
  6. PACLITAXEL [Suspect]
     Active Substance: PACLITAXEL
  7. DOCETAXEL [Suspect]
     Active Substance: DOCETAXEL
  8. LAPATINIB [Suspect]
     Active Substance: LAPATINIB
  9. CYCLOPHOSPHAMIDE [Suspect]
     Active Substance: CYCLOPHOSPHAMIDE
  10. NAVELBINE [Suspect]
     Active Substance: VINORELBINE TARTRATE
     Dosage: DAY 1-DAY8
  11. DENOSUMAB [Suspect]
     Active Substance: DENOSUMAB
  12. DOXORUBICIN [Suspect]
     Active Substance: DOXORUBICIN
     Dosage: 4 CYCLES
  13. GEMCITABINE [Suspect]
     Active Substance: GEMCITABINE
     Dosage: DAY 1, DAY 8
  14. TAMOXIFEN [Concomitant]
     Active Substance: TAMOXIFEN
  15. GONADORELIN DIACETATE TETRAHYDRATE [Concomitant]
     Active Substance: GONADORELIN DIACETATE TETRAHYDRATE

REACTIONS (7)
  - Neutropenia [None]
  - Hypertransaminasaemia [None]
  - Anaemia [None]
  - Pain in extremity [None]
  - Thrombocytopenia [None]
  - Mucosal inflammation [None]
  - Metastasis [None]
